FAERS Safety Report 6585351-7 (Version None)
Quarter: 2010Q1

REPORT INFORMATION
  Report Type: 
  Country: None (occurrence: None)
  Receive Date: 20100201
  Receipt Date: 20090330
  Transmission Date: 20100710
  Serious: Yes (Hospitalization)
  Sender: FDA-Public Use
  Company Number: 8044447

PATIENT
  Sex: Male
  Weight: 127.2 kg

DRUGS (7)
  1. KEPPRA [Suspect]
     Indication: CONVULSION
     Dosage: 1500 MG BID ORAL
     Route: 048
  2. CARBATROL [Concomitant]
  3. LAMICTAL [Concomitant]
  4. PALIPERIDONE [Concomitant]
  5. LEXAPRO [Concomitant]
  6. ADIPEX [Concomitant]
  7. ZOCOR [Concomitant]

REACTIONS (2)
  - CONVULSION [None]
  - MUSCLE TWITCHING [None]
